FAERS Safety Report 20648359 (Version 1)
Quarter: 2022Q1

REPORT INFORMATION
  Report Type: Spontaneous
  Country: GB (occurrence: GB)
  Receive Date: 20220329
  Receipt Date: 20220329
  Transmission Date: 20220423
  Serious: Yes (Other)
  Sender: FDA-Public Use
  Company Number: None

PATIENT
  Age: 54 Year
  Sex: Female
  Weight: 102 kg

DRUGS (1)
  1. OMEPRAZOLE [Suspect]
     Active Substance: OMEPRAZOLE
     Indication: Hiatus hernia
     Dosage: 40MG TWICE A DAY
     Dates: start: 20190601

REACTIONS (10)
  - Medication error [Unknown]
  - Dehydration [Not Recovered/Not Resolved]
  - Renal pain [Unknown]
  - Pollakiuria [Not Recovered/Not Resolved]
  - Nausea [Unknown]
  - Pain [Unknown]
  - Depression [Unknown]
  - Urinary tract infection [Unknown]
  - Bone pain [Not Recovered/Not Resolved]
  - Dyspepsia [Recovered/Resolved]

NARRATIVE: CASE EVENT DATE: 20201201
